FAERS Safety Report 26139380 (Version 2)
Quarter: 2025Q4

REPORT INFORMATION
  Report Type: Report from Study
  Country: EU (occurrence: EU)
  Receive Date: 20251210
  Receipt Date: 20251231
  Transmission Date: 20260117
  Serious: Yes (Hospitalization, Other)
  Sender: ABBVIE
  Company Number: EU-ABBVIE-6398911

PATIENT
  Age: 69 Year
  Sex: Female

DRUGS (8)
  1. FOSCARBIDOPA\FOSLEVODOPA [Suspect]
     Active Substance: FOSCARBIDOPA\FOSLEVODOPA
     Indication: Parkinson^s disease
     Dosage: SD 0.60 ML/H, CRN 0.32 ML/H, CR 0.38 ML/H, CRH 0,44 ML/H, ED 0.15 ML
     Route: 058
     Dates: start: 20250730, end: 20250730
  2. FOSCARBIDOPA\FOSLEVODOPA [Suspect]
     Active Substance: FOSCARBIDOPA\FOSLEVODOPA
     Indication: Parkinsonism
     Dosage: SD 0.60 ML/H, CRN 0.32 ML/H, CR 0.40 ML/H, CRH 0.42 ML/H, ED 0.15 ML
     Route: 058
     Dates: start: 20250731, end: 20250731
  3. FOSCARBIDOPA\FOSLEVODOPA [Suspect]
     Active Substance: FOSCARBIDOPA\FOSLEVODOPA
     Dosage: CRL 0.34 ML/H, CR 0.40 ML/H, CRH 0.42 ML/H, ED 0.15
     Route: 058
     Dates: start: 2025, end: 2025
  4. FOSCARBIDOPA\FOSLEVODOPA [Suspect]
     Active Substance: FOSCARBIDOPA\FOSLEVODOPA
     Dosage: CRN: 0,36 ML/H, CR: 0,44 ML/H, CRH: 0,46 ML/H, ED: 0,15 ML
     Route: 058
     Dates: start: 2025
  5. ASPIRIN [Concomitant]
     Active Substance: ASPIRIN
     Indication: Product used for unknown indication
  6. TORSEMIDE [Concomitant]
     Active Substance: TORSEMIDE
     Indication: Product used for unknown indication
     Dosage: 100
  7. ATORVASTATIN [Concomitant]
     Active Substance: ATORVASTATIN
     Indication: Product used for unknown indication
     Dosage: 40
  8. OPICAPONE [Concomitant]
     Active Substance: OPICAPONE
     Indication: Parkinson^s disease
     Dosage: 50

REACTIONS (16)
  - Lower limb fracture [Not Recovered/Not Resolved]
  - Reduced facial expression [Unknown]
  - On and off phenomenon [Recovering/Resolving]
  - Dysphonia [Unknown]
  - Freezing phenomenon [Recovered/Resolved]
  - Muscle spasms [Recovering/Resolving]
  - Cogwheel rigidity [Unknown]
  - Balance disorder [Unknown]
  - Resting tremor [Unknown]
  - Depressed mood [Unknown]
  - Tearfulness [Unknown]
  - Posture abnormal [Unknown]
  - Parkinsonian gait [Unknown]
  - Femoral neck fracture [Unknown]
  - Fall [Unknown]
  - Freezing phenomenon [Unknown]

NARRATIVE: CASE EVENT DATE: 20250101
